FAERS Safety Report 15409436 (Version 1)
Quarter: 2018Q4

REPORT INFORMATION
  Report Type: Spontaneous
  Country: BR (occurrence: BR)
  Receive Date: 20180920
  Receipt Date: 20180920
  Transmission Date: 20190204
  Serious: Yes (Hospitalization, Other)
  Sender: FDA-Public Use
  Company Number: BR-ARALEZ PHARMACEUTICALS R+D INC.-2018-ARA-002291

PATIENT
  Sex: Female
  Weight: 78 kg

DRUGS (9)
  1. PRESSAT [Concomitant]
     Active Substance: AMLODIPINE BESYLATE
     Indication: BLOOD PRESSURE MANAGEMENT
     Dosage: UNK
     Route: 048
  2. UNSPECIFIED [Concomitant]
     Active Substance: UNSPECIFIED INGREDIENT
     Indication: BONE DISORDER
     Dosage: UNK
  3. PRESSAT [Concomitant]
     Active Substance: AMLODIPINE BESYLATE
     Dosage: AS REQUIRED
     Route: 048
  4. ANCORON [Concomitant]
     Active Substance: AMIODARONE HYDROCHLORIDE
     Indication: ARRHYTHMIA
     Dosage: UNK
  5. VICTOZA [Concomitant]
     Active Substance: LIRAGLUTIDE
     Indication: DIABETES MELLITUS MANAGEMENT
     Dosage: UNK
     Dates: start: 201801
  6. METOPROLOL SUCCINATE. [Suspect]
     Active Substance: METOPROLOL SUCCINATE
     Indication: BLOOD PRESSURE MANAGEMENT
     Dosage: HALF TABLET, 100 MG, TWO TIMES A DAY
     Route: 048
     Dates: start: 2000, end: 2004
  7. SELOPRESS /01221601/ [Suspect]
     Active Substance: HYDROCHLOROTHIAZIDE\METOPROLOL SUCCINATE
     Indication: BLOOD PRESSURE MANAGEMENT
     Dosage: UNK
     Route: 048
     Dates: start: 2008
  8. ANCORON [Concomitant]
     Active Substance: AMIODARONE HYDROCHLORIDE
     Indication: BLOOD PRESSURE MANAGEMENT
  9. PRESSAT [Concomitant]
     Active Substance: AMLODIPINE BESYLATE
     Dosage: ROXFLAN, 5 MG
     Route: 048

REACTIONS (12)
  - Myocardial infarction [Recovered/Resolved]
  - Ischaemia [Not Recovered/Not Resolved]
  - Dyspnoea [Recovered/Resolved]
  - Blood pressure fluctuation [Not Recovered/Not Resolved]
  - Off label use [Unknown]
  - Tremor [Recovered/Resolved]
  - Hypertension [Not Recovered/Not Resolved]
  - Carotid arteriosclerosis [Not Recovered/Not Resolved]
  - Heart rate increased [Not Recovered/Not Resolved]
  - Fatigue [Not Recovered/Not Resolved]
  - Arterial occlusive disease [Recovered/Resolved]
  - Spinal pain [Not Recovered/Not Resolved]

NARRATIVE: CASE EVENT DATE: 2000
